FAERS Safety Report 11048972 (Version 2)
Quarter: 2015Q2

REPORT INFORMATION
  Report Type: Spontaneous
  Country: US (occurrence: US)
  Receive Date: 20150420
  Receipt Date: 20150427
  Transmission Date: 20150821
  Serious: Yes (Other)
  Sender: FDA-Public Use
  Company Number: US-PFIZER INC-2015132076

PATIENT
  Age: 66 Year
  Sex: Female

DRUGS (1)
  1. XANAX [Suspect]
     Active Substance: ALPRAZOLAM
     Dosage: 4 MG A DAY

REACTIONS (15)
  - Tinnitus [Recovering/Resolving]
  - Hypoacusis [Recovering/Resolving]
  - Hyperhidrosis [Recovering/Resolving]
  - Tremor [Recovering/Resolving]
  - Emotional disorder [Recovering/Resolving]
  - Confusional state [Recovering/Resolving]
  - Headache [Recovered/Resolved]
  - Insomnia [Recovered/Resolved]
  - Sleep terror [Recovered/Resolved]
  - Mental disorder [Recovering/Resolving]
  - Paraesthesia [Recovering/Resolving]
  - Bedridden [Recovering/Resolving]
  - Drug dependence [Unknown]
  - Feeling abnormal [Recovering/Resolving]
  - Stress [Recovering/Resolving]

NARRATIVE: CASE EVENT DATE: 201503
